FAERS Safety Report 6590670-4 (Version None)
Quarter: 2010Q1

REPORT INFORMATION
  Report Type: 
  Country: None (occurrence: None)
  Receive Date: 20100219
  Receipt Date: 20100208
  Transmission Date: 20100710
  Serious: Yes (Hospitalization)
  Sender: FDA-Public Use
  Company Number: B0628424A

PATIENT
  Sex: Male

DRUGS (3)
  1. PAZOPANIB [Suspect]
     Indication: NEOPLASM
     Route: 048
     Dates: start: 20100111, end: 20100119
  2. HOLOXAN [Suspect]
     Indication: NEOPLASM
     Route: 042
     Dates: start: 20100111, end: 20100119
  3. ZANTAC [Concomitant]
     Dosage: 150MG TWICE PER DAY
     Route: 048

REACTIONS (3)
  - DUODENITIS [None]
  - GASTROINTESTINAL HAEMORRHAGE [None]
  - OESOPHAGITIS [None]
